FAERS Safety Report 12262465 (Version 1)
Quarter: 2016Q2

REPORT INFORMATION
  Report Type: Spontaneous
  Country: FR (occurrence: FR)
  Receive Date: 20160413
  Receipt Date: 20160413
  Transmission Date: 20160815
  Serious: Yes (Life-Threatening, Hospitalization)
  Sender: FDA-Public Use
  Company Number: FR-ACCORD-039597

PATIENT
  Age: 25 Year
  Sex: Female

DRUGS (1)
  1. GEMCITABINE ACCORD [Suspect]
     Active Substance: GEMCITABINE HYDROCHLORIDE
     Indication: DEDIFFERENTIATED LIPOSARCOMA
     Route: 042
     Dates: start: 20150226

REACTIONS (4)
  - Acute pulmonary oedema [Unknown]
  - Metabolic acidosis [Recovering/Resolving]
  - Haemolytic uraemic syndrome [Recovered/Resolved]
  - Off label use [Unknown]

NARRATIVE: CASE EVENT DATE: 20150626
